FAERS Safety Report 25326970 (Version 5)
Quarter: 2025Q4

REPORT INFORMATION
  Report Type: Spontaneous
  Country: US (occurrence: US)
  Receive Date: 20250517
  Receipt Date: 20251103
  Transmission Date: 20260117
  Serious: Yes (Other)
  Sender: SANOFI AVENTIS
  Company Number: US-SA-2025SA138836

PATIENT
  Age: 72 Year
  Sex: Female
  Weight: 90 kg

DRUGS (24)
  1. KEVZARA [Suspect]
     Active Substance: SARILUMAB
     Indication: Polymyalgia rheumatica
     Dosage: 200 MG, QOW
     Route: 058
     Dates: start: 20250425
  2. FUROSEMIDE [Concomitant]
     Active Substance: FUROSEMIDE
  3. VITAMIN D3 [Concomitant]
     Active Substance: CHOLECALCIFEROL
  4. VITAMIN E [Concomitant]
     Active Substance: .ALPHA.-TOCOPHEROL
  5. BIOTIN [Concomitant]
     Active Substance: BIOTIN
  6. VITAMIN B COMPLEX [Concomitant]
     Active Substance: CYANOCOBALAMIN\DEXPANTHENOL\NIACINAMIDE\PYRIDOXINE HYDROCHLORIDE\RIBOFLAVIN 5^-PHOSPHATE SODIUM\THIA
  7. VITAMIN C [Concomitant]
     Active Substance: ASCORBIC ACID
  8. MAGNESIUM [Concomitant]
     Active Substance: MAGNESIUM
  9. ZINC [Concomitant]
     Active Substance: ZINC
  10. SELENIUM [Concomitant]
     Active Substance: SELENIUM
  11. PANTOPRAZOLE SODIUM [Concomitant]
     Active Substance: PANTOPRAZOLE SODIUM
  12. ASPIRIN [Concomitant]
     Active Substance: ASPIRIN
  13. PREDNISONE [Concomitant]
     Active Substance: PREDNISONE
  14. BACTRIM [Concomitant]
     Active Substance: SULFAMETHOXAZOLE\TRIMETHOPRIM
  15. METFORMIN [Concomitant]
     Active Substance: METFORMIN HYDROCHLORIDE
  16. VITAMIN E [Concomitant]
     Active Substance: .ALPHA.-TOCOPHEROL
  17. VITAMINS [Concomitant]
     Active Substance: VITAMINS
  18. BIOTIN [Concomitant]
     Active Substance: BIOTIN
  19. MAGNESIUM [Concomitant]
     Active Substance: MAGNESIUM
  20. VITAMIN B12 [Concomitant]
     Active Substance: CYANOCOBALAMIN
  21. METFORMIN HYDROCHLORIDE [Concomitant]
     Active Substance: METFORMIN HYDROCHLORIDE
  22. HYDROCHLOROTHIAZIDE [Concomitant]
     Active Substance: HYDROCHLOROTHIAZIDE
  23. PREDNISONE [Concomitant]
     Active Substance: PREDNISONE
  24. VITAMIN D3 [Concomitant]
     Active Substance: CHOLECALCIFEROL

REACTIONS (16)
  - Haematochezia [Unknown]
  - Blood glucose increased [Not Recovered/Not Resolved]
  - Abdominal pain upper [Not Recovered/Not Resolved]
  - Hyperhidrosis [Not Recovered/Not Resolved]
  - Pain [Not Recovered/Not Resolved]
  - Contusion [Not Recovered/Not Resolved]
  - Erythema [Not Recovered/Not Resolved]
  - Skin discolouration [Not Recovered/Not Resolved]
  - Fatigue [Not Recovered/Not Resolved]
  - Rhinorrhoea [Not Recovered/Not Resolved]
  - Abdominal discomfort [Unknown]
  - Hypoaesthesia [Unknown]
  - Stomatitis [Unknown]
  - Blood cholesterol increased [Unknown]
  - Influenza [Not Recovered/Not Resolved]
  - Drug ineffective [Unknown]

NARRATIVE: CASE EVENT DATE: 20250101
